FAERS Safety Report 8304318-1 (Version None)
Quarter: 2012Q2

REPORT INFORMATION
  Report Type: 
  Country: None (occurrence: None)
  Receive Date: 20120423
  Receipt Date: 20120423
  Transmission Date: 20120825
  Serious: Yes (Other)
  Sender: FDA-Public Use
  Company Number: None

PATIENT
  Age: 35 Year
  Sex: Female
  Weight: 85.728 kg

DRUGS (2)
  1. LISINOPRIL [Suspect]
     Indication: NEPHROPATHY
     Dosage: 10MG
     Route: 048
     Dates: start: 20120404, end: 20120421
  2. LISINOPRIL [Concomitant]

REACTIONS (3)
  - DYSPNOEA [None]
  - CHEST DISCOMFORT [None]
  - FATIGUE [None]
